FAERS Safety Report 6577994-1 (Version None)
Quarter: 2010Q1

REPORT INFORMATION
  Report Type: 
  Country: None (occurrence: None)
  Receive Date: 20100211
  Receipt Date: 20100208
  Transmission Date: 20100710
  Serious: Yes (Other)
  Sender: FDA-Public Use
  Company Number: US-BRISTOL-MYERS SQUIBB COMPANY-14968952

PATIENT
  Age: 72 Year
  Sex: Female

DRUGS (3)
  1. METFORMIN HCL [Suspect]
  2. GLYBURIDE [Suspect]
  3. LANTUS [Suspect]
     Indication: TYPE 2 DIABETES MELLITUS
     Dosage: 1 DF= 20 UNITS
     Dates: start: 20091218

REACTIONS (2)
  - BLOOD GLUCOSE INCREASED [None]
  - KIDNEY INFECTION [None]
